FAERS Safety Report 19731224 (Version 3)
Quarter: 2022Q2

REPORT INFORMATION
  Report Type: Report from Study
  Country: US (occurrence: US)
  Receive Date: 20210821
  Receipt Date: 20220412
  Transmission Date: 20220720
  Serious: No
  Sender: FDA-Public Use
  Company Number: US-TAKEDA-2021TUS051553

PATIENT
  Age: 18 Year
  Sex: Male

DRUGS (2)
  1. IDURSULFASE [Suspect]
     Active Substance: IDURSULFASE
     Indication: Mucopolysaccharidosis II
     Dosage: UNK
     Route: 042
     Dates: start: 20210716
  2. IDURSULFASE [Suspect]
     Active Substance: IDURSULFASE
     Dosage: UNK UNK, 1/WEEK
     Route: 042
     Dates: start: 20210826

REACTIONS (3)
  - Urticaria [Unknown]
  - Infusion related reaction [Unknown]
  - Product dose omission issue [Unknown]

NARRATIVE: CASE EVENT DATE: 20210813
